FAERS Safety Report 24026738 (Version 1)
Quarter: 2024Q2

REPORT INFORMATION
  Report Type: Report from Study
  Country: US (occurrence: US)
  Receive Date: 20240628
  Receipt Date: 20240628
  Transmission Date: 20240716
  Serious: No
  Sender: FDA-Public Use
  Company Number: US-ROCHE-3554724

PATIENT
  Age: 65 Year
  Sex: Male

DRUGS (2)
  1. ALECENSA [Suspect]
     Active Substance: ALECTINIB HYDROCHLORIDE
     Indication: Lung neoplasm malignant
     Dosage: WITH MEAL.
     Route: 048
     Dates: start: 202201
  2. ALECENSA [Suspect]
     Active Substance: ALECTINIB HYDROCHLORIDE
     Dosage: WITH MEAL.
     Route: 048

REACTIONS (4)
  - Myalgia [Recovered/Resolved]
  - Oedema [Unknown]
  - Constipation [Recovered/Resolved]
  - Fatigue [Recovered/Resolved]
